FAERS Safety Report 8503476-3 (Version None)
Quarter: 2012Q3

REPORT INFORMATION
  Report Type: 
  Country: None (occurrence: None)
  Receive Date: 20120711
  Receipt Date: 20120703
  Transmission Date: 20120928
  Serious: Yes (Death)
  Sender: FDA-Public Use
  Company Number: US-GLAXOSMITHKLINE-A0983995A

PATIENT
  Age: 45 Year
  Sex: Female

DRUGS (3)
  1. HERCEPTIN [Concomitant]
  2. COUMADIN [Concomitant]
  3. TYKERB [Suspect]
     Indication: BREAST CANCER FEMALE
     Dosage: 750MG PER DAY
     Route: 048
     Dates: start: 20110525, end: 20120507

REACTIONS (1)
  - DEATH [None]
